FAERS Safety Report 9814470 (Version 1)
Quarter: 2014Q1

REPORT INFORMATION
  Report Type: Spontaneous
  Country: US (occurrence: US)
  Receive Date: 20140113
  Receipt Date: 20140113
  Transmission Date: 20141002
  Serious: No
  Sender: FDA-Public Use
  Company Number: US-ENDO PHARMACEUTICALS INC.-HCDA20130134

PATIENT
  Sex: Male

DRUGS (2)
  1. HYDROCODONE BITARTRATE / ACETAMINOPHEN 7.5MG/325MG [Suspect]
     Indication: PAIN
     Dosage: 45MG/1950MG
     Route: 048
  2. HYDROCODONE BITARTRATE / ACETAMINOPHEN 7.5MG/325MG [Suspect]
     Indication: CYSTITIS RADIATION

REACTIONS (6)
  - Feeling abnormal [Recovered/Resolved]
  - Influenza like illness [Recovered/Resolved]
  - Vision blurred [Recovered/Resolved]
  - Dizziness [Recovered/Resolved]
  - Irritability [Recovered/Resolved]
  - Drug ineffective [Recovered/Resolved]
